FAERS Safety Report 17008657 (Version 1)
Quarter: 2019Q4

REPORT INFORMATION
  Report Type: Spontaneous
  Country: PT (occurrence: PT)
  Receive Date: 20191108
  Receipt Date: 20191108
  Transmission Date: 20200122
  Serious: Yes (Death, Other)
  Sender: FDA-Public Use
  Company Number: PT-ROCHE-2413843

PATIENT
  Sex: Female

DRUGS (2)
  1. PLATINUM [Suspect]
     Active Substance: PLATINUM
     Indication: GENITAL NEOPLASM MALIGNANT FEMALE
     Route: 065
  2. AVASTIN [Suspect]
     Active Substance: BEVACIZUMAB
     Indication: GENITAL NEOPLASM MALIGNANT FEMALE
     Route: 065

REACTIONS (2)
  - Gastrointestinal perforation [Unknown]
  - Death [Fatal]

NARRATIVE: CASE EVENT DATE: 201906
